FAERS Safety Report 15477450 (Version 2)
Quarter: 2019Q1

REPORT INFORMATION
  Report Type: Spontaneous
  Country: SG (occurrence: SG)
  Receive Date: 20181009
  Receipt Date: 20190112
  Transmission Date: 20190417
  Serious: Yes (Life-Threatening, Hospitalization, Other)
  Sender: FDA-Public Use
  Company Number: SG-ACCORD-073049

PATIENT
  Age: 43 Year
  Sex: Male

DRUGS (3)
  1. QUETIAPINE. [Suspect]
     Active Substance: QUETIAPINE
  2. CLOZAPINE. [Suspect]
     Active Substance: CLOZAPINE
  3. VENLAFAXINE/VENLAFAXINE HYDROCHLORIDE [Suspect]
     Active Substance: VENLAFAXINE HYDROCHLORIDE

REACTIONS (4)
  - Transaminases increased [Recovered/Resolved]
  - Overdose [Unknown]
  - Pneumonia aspiration [Unknown]
  - Neuroleptic malignant syndrome [Recovering/Resolving]
